FAERS Safety Report 13565714 (Version 2)
Quarter: 2017Q2

REPORT INFORMATION
  Report Type: Report from Study
  Country: None (occurrence: CH)
  Receive Date: 20170519
  Receipt Date: 20170607
  Transmission Date: 20170830
  Serious: Yes (Death)
  Sender: FDA-Public Use
  Company Number: CH-ABBVIE-17P-151-1973879-00

PATIENT
  Sex: Male

DRUGS (1)
  1. DUODOPA [Suspect]
     Active Substance: CARBIDOPA\LEVODOPA
     Indication: PARKINSON^S DISEASE
     Dosage: MD 6.0ML, CRD 3.9ML/H, ED 1.5ML, 16 HOUR THERAPY, 1 CASSETTE PER DAY
     Route: 050
     Dates: start: 201311

REACTIONS (4)
  - Refusal of treatment by patient [Fatal]
  - Disorientation [Fatal]
  - Urinary tract infection [Fatal]
  - Multimorbidity [Fatal]
